FAERS Safety Report 18169072 (Version 1)
Quarter: 2020Q3

REPORT INFORMATION
  Report Type: Spontaneous
  Country: US (occurrence: US)
  Receive Date: 20200819
  Receipt Date: 20200819
  Transmission Date: 20201103
  Serious: No
  Sender: FDA-Public Use
  Company Number: US-PFIZER INC-2020052588

PATIENT
  Age: 75 Year
  Sex: Male

DRUGS (2)
  1. SUTENT [Suspect]
     Active Substance: SUNITINIB MALATE
     Dosage: 50 MG, 1 WEEK ON 3 DAYS OFF AND THEN 1 WEEK ON 4 DAYS OFF
     Dates: start: 20160706
  2. SUTENT [Suspect]
     Active Substance: SUNITINIB MALATE
     Indication: METASTATIC RENAL CELL CARCINOMA
     Dosage: 50 MG, DAILY 2 WEEKS ON, 1 WEEK OFF
     Dates: start: 20160302

REACTIONS (1)
  - Neoplasm progression [Not Recovered/Not Resolved]
